FAERS Safety Report 9958407 (Version 1)
Quarter: 2014Q1

REPORT INFORMATION
  Report Type: Spontaneous
  Country: IT (occurrence: IT)
  Receive Date: 20140305
  Receipt Date: 20140305
  Transmission Date: 20141002
  Serious: Yes (Other)
  Sender: FDA-Public Use
  Company Number: IT-RANBAXY-2014RR-78503

PATIENT
  Age: 53 Year
  Sex: Female

DRUGS (2)
  1. PARACETAMOL [Suspect]
     Indication: INFLUENZA
     Dosage: 1000 MG
     Route: 048
     Dates: start: 20131206, end: 20131206
  2. BRUFEN [Suspect]
     Indication: HEADACHE
     Dosage: 600 MG
     Route: 048
     Dates: start: 20131206, end: 20131206

REACTIONS (5)
  - Face oedema [Recovered/Resolved]
  - Lip oedema [Recovered/Resolved]
  - Pruritus [Recovered/Resolved]
  - Urticaria [Recovered/Resolved]
  - Anaphylactic reaction [None]
